FAERS Safety Report 23400462 (Version 3)
Quarter: 2024Q1

REPORT INFORMATION
  Report Type: Spontaneous
  Country: KR (occurrence: KR)
  Receive Date: 20240115
  Receipt Date: 20240118
  Transmission Date: 20240409
  Serious: Yes (Hospitalization, Other)
  Sender: FDA-Public Use
  Company Number: KR-MLMSERVICE-20231228-4746609-1

PATIENT
  Age: 40 Year
  Sex: Male

DRUGS (8)
  1. NASACORT ALLERGY 24HR [Suspect]
     Active Substance: TRIAMCINOLONE ACETONIDE
     Indication: Back pain
     Dosage: TOTAL VOLUME OF 16 ML, WHICH INCLUDED LIDOCAINE 2% AT 1.3 ML, DEXAMETHASONE AT 0.5 MG, AND A SMALL A
     Route: 008
  2. NASACORT ALLERGY 24HR [Suspect]
     Active Substance: TRIAMCINOLONE ACETONIDE
     Indication: Epidural injection
  3. ASPERCREME LIDOCAINE NO-MESS PLUS LAVENDER [Suspect]
     Active Substance: LIDOCAINE HYDROCHLORIDE
     Indication: Back pain
     Dosage: TOTAL VOLUME OF 16 ML, WHICH INCLUDED LIDOCAINE 2% AT 1.3 ML, DEXAMETHASONE AT 0.5 MG, AND A SMALL A
     Route: 008
  4. ASPERCREME LIDOCAINE NO-MESS PLUS LAVENDER [Suspect]
     Active Substance: LIDOCAINE HYDROCHLORIDE
     Indication: Epidural injection
  5. SALINE [Suspect]
     Active Substance: SODIUM CHLORIDE
     Indication: Back pain
     Route: 008
  6. SALINE [Suspect]
     Active Substance: SODIUM CHLORIDE
     Indication: Epidural injection
  7. DEXAMETHASONE [Suspect]
     Active Substance: DEXAMETHASONE
     Indication: Back pain
     Dosage: TOTAL VOLUME OF 16 ML, WHICH INCLUDED LIDOCAINE 2% AT 1.3 ML, DEXAMETHASONE AT 0.5 MG, AND A SMALL A
     Route: 008
  8. DEXAMETHASONE [Suspect]
     Active Substance: DEXAMETHASONE
     Indication: Epidural injection

REACTIONS (11)
  - Spinal epidural haemorrhage [Recovering/Resolving]
  - Spinal cord infarction [Not Recovered/Not Resolved]
  - Cauda equina syndrome [Recovering/Resolving]
  - Diplegia [Not Recovered/Not Resolved]
  - Motor dysfunction [Not Recovered/Not Resolved]
  - Areflexia [Not Recovered/Not Resolved]
  - Urinary retention [Recovering/Resolving]
  - Spinal meningeal cyst [Recovering/Resolving]
  - Functional gastrointestinal disorder [Recovering/Resolving]
  - Paraesthesia [Not Recovered/Not Resolved]
  - Pain [Not Recovered/Not Resolved]
